FAERS Safety Report 6027986-6 (Version None)
Quarter: 2008Q4

REPORT INFORMATION
  Report Type: 
  Country: None (occurrence: None)
  Receive Date: 20081230
  Receipt Date: 20081210
  Transmission Date: 20090506
  Serious: No
  Sender: FDA-Public Use
  Company Number: JHP200800349

PATIENT
  Age: 30 Year
  Sex: Female

DRUGS (1)
  1. DANTRIUM [Suspect]
     Indication: NEUROLEPTIC MALIGNANT SYNDROME

REACTIONS (1)
  - NO ADVERSE EVENT [None]
